FAERS Safety Report 5441709-0 (Version None)
Quarter: 2007Q3

REPORT INFORMATION
  Report Type: 
  Country: None (occurrence: None)
  Receive Date: 20070829
  Receipt Date: 20070815
  Transmission Date: 20080115
  Serious: Yes (Death)
  Sender: FDA-Public Use
  Company Number: 8026167

PATIENT
  Age: 44 Year

DRUGS (3)
  1. KEPPRA [Suspect]
     Dosage: 3000 MG /D
  2. ZONEGRAN [Concomitant]
  3. TIMONIL [Concomitant]

REACTIONS (1)
  - DEATH [None]
